FAERS Safety Report 9665230 (Version 1)
Quarter: 2013Q4

REPORT INFORMATION
  Report Type: Report from Study
  Country: LB (occurrence: LB)
  Receive Date: 20131101
  Receipt Date: 20131101
  Transmission Date: 20140711
  Serious: Yes (Death)
  Sender: FDA-Public Use
  Company Number: PHHY2013LB123553

PATIENT
  Age: 59 Year
  Sex: Male

DRUGS (6)
  1. ACLASTA [Suspect]
     Indication: OSTEOPOROSIS
     Dosage: 5 MG, UNK
     Route: 042
     Dates: start: 201110
  2. GASTRIMUT [Concomitant]
     Dosage: 1 DF,  DAILY
  3. SINTROM [Concomitant]
     Dosage: 1 DF,  DAILY
  4. CORDARONE [Concomitant]
     Dosage: 1 DF, DAILY
  5. ORACOL [Concomitant]
     Dosage: UNK
  6. COZAAR [Concomitant]
     Dosage: 1 DF, UNK
     Route: 048

REACTIONS (1)
  - Death [Fatal]
